FAERS Safety Report 24937404 (Version 4)
Quarter: 2025Q1

REPORT INFORMATION
  Report Type: Spontaneous
  Country: US (occurrence: US)
  Receive Date: 20250206
  Receipt Date: 20250304
  Transmission Date: 20250409
  Serious: Yes (Hospitalization, Other)
  Sender: BIOVITRUM
  Company Number: US-BIOVITRUM-2025-US-001727

PATIENT
  Age: 65 Year
  Sex: Female

DRUGS (2)
  1. VONJO [Suspect]
     Active Substance: PACRITINIB
     Indication: Myelofibrosis
     Route: 048
  2. VONJO [Suspect]
     Active Substance: PACRITINIB
     Route: 048

REACTIONS (10)
  - Hepatic cirrhosis [Unknown]
  - Hepatic failure [Unknown]
  - Incorrect dose administered [Unknown]
  - Balance disorder [Unknown]
  - Fall [Unknown]
  - Dysstasia [Unknown]
  - Platelet count decreased [Unknown]
  - Gait disturbance [Unknown]
  - Pneumonia [Unknown]
  - Condition aggravated [Unknown]
